FAERS Safety Report 17031410 (Version 1)
Quarter: 2019Q4

REPORT INFORMATION
  Report Type: Spontaneous
  Country: QA (occurrence: QA)
  Receive Date: 20191113
  Receipt Date: 20191113
  Transmission Date: 20200122
  Serious: No
  Sender: FDA-Public Use
  Company Number: None

PATIENT
  Age: 69 Year
  Sex: Female
  Weight: 75 kg

DRUGS (1)
  1. PROLIA [Suspect]
     Active Substance: DENOSUMAB
     Indication: OSTEOPOROSIS
     Dosage: ?          OTHER FREQUENCY:EVERY 6 MONTHS;?
     Route: 058

REACTIONS (1)
  - Blood thyroid stimulating hormone increased [None]

NARRATIVE: CASE EVENT DATE: 20191105
